FAERS Safety Report 5080875-6 (Version None)
Quarter: 2006Q3

REPORT INFORMATION
  Report Type: 
  Country: None (occurrence: None)
  Receive Date: 20060811
  Receipt Date: 20060619
  Transmission Date: 20061208
  Serious: Yes (Hospitalization, Other)
  Sender: FDA-Public Use
  Company Number: 2006095403

PATIENT
  Age: 71 Year
  Sex: Male

DRUGS (1)
  1. BEXTRA [Suspect]
     Indication: OSTEOARTHRITIS
     Dosage: 10 MG
     Dates: start: 20040819, end: 20040826

REACTIONS (5)
  - CHILLS [None]
  - HYPOTENSION [None]
  - PYREXIA [None]
  - RENAL FAILURE [None]
  - STEVENS-JOHNSON SYNDROME [None]
